FAERS Safety Report 11786050 (Version 1)
Quarter: 2015Q4

REPORT INFORMATION
  Report Type: Spontaneous
  Country: US (occurrence: None)
  Receive Date: 20151125
  Receipt Date: 20151125
  Transmission Date: 20160305
  Serious: Yes (Other)
  Sender: FDA-Public Use
  Company Number: None

PATIENT
  Age: 30 Year
  Sex: Female

DRUGS (5)
  1. TRAZODONE [Concomitant]
     Active Substance: TRAZODONE HYDROCHLORIDE
  2. LAMOTRIGINE. [Suspect]
     Active Substance: LAMOTRIGINE
     Indication: AFFECTIVE DISORDER
     Route: 048
     Dates: start: 20151027, end: 20151028
  3. QUETIAPINE [Concomitant]
     Active Substance: QUETIAPINE
  4. BUSPIRONE [Concomitant]
     Active Substance: BUSPIRONE HYDROCHLORIDE
  5. BUPROPION. [Concomitant]
     Active Substance: BUPROPION

REACTIONS (3)
  - Insomnia [None]
  - Product quality issue [None]
  - Agitation [None]

NARRATIVE: CASE EVENT DATE: 20151027
